FAERS Safety Report 8251786-X (Version None)
Quarter: 2012Q2

REPORT INFORMATION
  Report Type: 
  Country: None (occurrence: None)
  Receive Date: 20120402
  Receipt Date: 20120327
  Transmission Date: 20120825
  Serious: Yes (Other)
  Sender: FDA-Public Use
  Company Number: US-PFIZER INC-2012078772

PATIENT
  Sex: Male

DRUGS (1)
  1. LIPITOR [Suspect]
     Indication: CARDIOVASCULAR DISORDER
     Dosage: 10 MG, 1X/DAY
     Route: 048

REACTIONS (5)
  - BLOOD IRON DECREASED [None]
  - BLINDNESS [None]
  - DYSPNOEA [None]
  - HAEMORRHAGE [None]
  - ATRIAL FIBRILLATION [None]
